FAERS Safety Report 7130908-8 (Version None)
Quarter: 2010Q4

REPORT INFORMATION
  Report Type: 
  Country: None (occurrence: None)
  Receive Date: 20101101
  Receipt Date: 20100816
  Transmission Date: 20110411
  Serious: No
  Sender: FDA-Public Use
  Company Number: 2010-11002

PATIENT
  Age: 56 Year
  Sex: Male
  Weight: 64.4 kg

DRUGS (1)
  1. RAPAFLO [Suspect]
     Indication: POLLAKIURIA
     Dosage: 1 TAB DAILY, ORAL
     Route: 048
     Dates: start: 20100809

REACTIONS (3)
  - DRUG INEFFECTIVE [None]
  - NASOPHARYNGITIS [None]
  - SINUS CONGESTION [None]
